FAERS Safety Report 9885195 (Version 1)
Quarter: 2014Q1

REPORT INFORMATION
  Report Type: Spontaneous
  Country: US (occurrence: US)
  Receive Date: 20140210
  Receipt Date: 20140210
  Transmission Date: 20141002
  Serious: No
  Sender: FDA-Public Use
  Company Number: US-PFIZER INC-2014034251

PATIENT
  Age: 47 Year
  Sex: Male
  Weight: 73.47 kg

DRUGS (1)
  1. CHANTIX [Suspect]
     Indication: SMOKING CESSATION THERAPY
     Dosage: UNK
     Dates: start: 20140111

REACTIONS (5)
  - Erythema [Unknown]
  - Aggression [Unknown]
  - Mood altered [Unknown]
  - Personality change [Unknown]
  - Suspiciousness [Unknown]
